FAERS Safety Report 5216495-X (Version None)
Quarter: 2006Q4

REPORT INFORMATION
  Report Type: 
  Country: None (occurrence: None)
  Receive Date: 20061129
  Receipt Date: 20050202
  Transmission Date: 20070319
  Serious: Yes (Hospitalization)
  Sender: FDA-Public Use
  Company Number: 2005UW02391

PATIENT
  Age: 80 Year
  Sex: Female
  Weight: 83.46 kg

DRUGS (6)
  1. FASLODEX [Suspect]
     Indication: BREAST CANCER METASTATIC
     Dates: start: 20040901, end: 20041201
  2. GLUCOTROL [Concomitant]
  3. LASIX [Concomitant]
  4. VERAPAMIL [Concomitant]
  5. ALLOPURINOL SODIUM [Concomitant]
  6. SYNTHROID [Concomitant]

REACTIONS (1)
  - PULMONARY EMBOLISM [None]
